FAERS Safety Report 15161018 (Version 1)
Quarter: 2018Q3

REPORT INFORMATION
  Report Type: Spontaneous
  Country: US (occurrence: US)
  Receive Date: 20180718
  Receipt Date: 20180718
  Transmission Date: 20181010
  Serious: No
  Sender: FDA-Public Use
  Company Number: US-JAZZ-2018-US-006581

PATIENT
  Sex: Female

DRUGS (2)
  1. XYREM [Suspect]
     Active Substance: SODIUM OXYBATE
     Dosage: 3/4 OF THE 3G BID DOSE
     Dates: start: 201804
  2. XYREM [Suspect]
     Active Substance: SODIUM OXYBATE
     Indication: PRODUCT USED FOR UNKNOWN INDICATION
     Dosage: 3 G, BID
     Route: 048
     Dates: start: 2011, end: 201804

REACTIONS (10)
  - Disorientation [Recovered/Resolved]
  - Product preparation error [Unknown]
  - Dizziness [Recovered/Resolved]
  - Product quality issue [Unknown]
  - Arthropathy [Recovered/Resolved]
  - Balance disorder [Recovered/Resolved]
  - Feeling drunk [Recovered/Resolved]
  - Wrong technique in product usage process [Unknown]
  - Bradyphrenia [Recovered/Resolved]
  - Somnolence [Recovered/Resolved]
